FAERS Safety Report 7898654-0 (Version None)
Quarter: 2011Q4

REPORT INFORMATION
  Report Type: 
  Country: None (occurrence: None)
  Receive Date: 20111107
  Receipt Date: 20111031
  Transmission Date: 20120403
  Serious: Yes (Death, Other)
  Sender: FDA-Public Use
  Company Number: US-ACTELION-A-US2011-56381

PATIENT

DRUGS (18)
  1. TRACLEER [Suspect]
     Dosage: 62.5 MG, BID
     Route: 048
  2. MORPHINE [Concomitant]
  3. FUROSEMIDE [Concomitant]
  4. TAMSULOSIN HCL [Concomitant]
  5. METOPROLOL [Concomitant]
  6. PREDNISONA ALONGA [Concomitant]
  7. BUDESONIDE [Concomitant]
  8. SALINE [Concomitant]
  9. ASPIRIN [Concomitant]
  10. LISINOPRIL [Concomitant]
  11. ALBUTEROL SULFATE AND IPRATROPIUM BROMIDE [Concomitant]
  12. IMDUR [Concomitant]
  13. TRACLEER [Suspect]
     Indication: PULMONARY ARTERIAL HYPERTENSION
     Dosage: 125 MG, BID
     Route: 048
     Dates: end: 20111017
  14. HYDROCODONE BITARTRATE AND ACETAMINOPHEN [Concomitant]
  15. FENTANYL [Concomitant]
  16. DOCUSATE SODIUM [Concomitant]
  17. CHOLECALCIFEROL [Concomitant]
  18. LEVOTHYROXINE SODIUM [Concomitant]

REACTIONS (12)
  - METABOLIC ACIDOSIS [None]
  - MENTAL STATUS CHANGES [None]
  - DYSPNOEA [None]
  - HYPOPERFUSION [None]
  - ACUTE RESPIRATORY FAILURE [None]
  - HYPOXIA [None]
  - TERMINAL STATE [None]
  - METABOLIC ENCEPHALOPATHY [None]
  - RENAL FAILURE ACUTE [None]
  - RENAL IMPAIRMENT [None]
  - HYPOTENSION [None]
  - HYPOVOLAEMIA [None]
